FAERS Safety Report 9454152 (Version 3)
Quarter: 2013Q4

REPORT INFORMATION
  Report Type: Spontaneous
  Country: US (occurrence: None)
  Receive Date: 20130807
  Receipt Date: 20131227
  Transmission Date: 20140711
  Serious: Yes (Congenital Anomaly)
  Sender: FDA-Public Use
  Company Number: SYM-2013-07650

PATIENT
  Age: 0 Day
  Sex: Male

DRUGS (1)
  1. WELLBUTRIN [Suspect]
     Indication: DEPRESSION
     Route: 064
     Dates: start: 20030911, end: 20031230

REACTIONS (8)
  - Hypoplastic left heart syndrome [None]
  - Congenital aortic stenosis [None]
  - Maternal drugs affecting foetus [None]
  - Foetal exposure during pregnancy [None]
  - Cardiac arrest [None]
  - Embolic stroke [None]
  - Vena cava thrombosis [None]
  - Cerebral infarction [None]
